FAERS Safety Report 5964875-7 (Version None)
Quarter: 2008Q4

REPORT INFORMATION
  Report Type: 
  Country: None (occurrence: None)
  Receive Date: 20081125
  Receipt Date: 20081119
  Transmission Date: 20090506
  Serious: Yes (Other)
  Sender: FDA-Public Use
  Company Number: US-BAYER-200814473BCC

PATIENT
  Age: 61 Year
  Sex: Male
  Weight: 102 kg

DRUGS (5)
  1. ALKA SELTZER PLUS NIGHT-TIME EFFERVESCENT (FORMULATION NOT SPECIFIED) [Suspect]
     Indication: SINUS DISORDER
     Route: 048
     Dates: start: 20081030, end: 20081031
  2. LANTUS [Concomitant]
  3. DIOVAN [Concomitant]
  4. LEXAPRO [Concomitant]
  5. LYCRIA [Concomitant]

REACTIONS (3)
  - BLOOD GLUCOSE DECREASED [None]
  - FATIGUE [None]
  - SHOCK HYPOGLYCAEMIC [None]
